FAERS Safety Report 13131467 (Version 12)
Quarter: 2024Q3

REPORT INFORMATION
  Report Type: Spontaneous
  Country: US (occurrence: US)
  Receive Date: 20170119
  Receipt Date: 20240822
  Transmission Date: 20241017
  Serious: No
  Sender: PFIZER
  Company Number: US-PFIZER INC-2017022444

PATIENT
  Age: 53 Year
  Sex: Female
  Weight: 63.5 kg

DRUGS (3)
  1. PREMPRO [Suspect]
     Active Substance: ESTROGENS, CONJUGATED\MEDROXYPROGESTERONE ACETATE
     Indication: Rheumatoid arthritis
     Dosage: 0.625/2.5 MG, 1X/DAY
     Route: 048
     Dates: start: 1997
  2. PREMPRO [Suspect]
     Active Substance: ESTROGENS, CONJUGATED\MEDROXYPROGESTERONE ACETATE
     Indication: Sjogren^s syndrome
     Dosage: 0.625/2.5MG 1 TABLET ONCE A DAY
     Route: 048
     Dates: end: 201901
  3. PREMPRO [Suspect]
     Active Substance: ESTROGENS, CONJUGATED\MEDROXYPROGESTERONE ACETATE
     Indication: Autoimmune disorder
     Dosage: 0.625/2.5MG TABLET ONCE A DAY

REACTIONS (8)
  - Off label use [Unknown]
  - Drug effective for unapproved indication [Unknown]
  - Asthenia [Not Recovered/Not Resolved]
  - Fatigue [Unknown]
  - Arthralgia [Unknown]
  - Pain [Unknown]
  - Sleep disorder [Unknown]
  - Depression [Unknown]

NARRATIVE: CASE EVENT DATE: 19970101
